FAERS Safety Report 11283152 (Version 1)
Quarter: 2015Q3

REPORT INFORMATION
  Report Type: Spontaneous
  Country: US (occurrence: None)
  Receive Date: 20150717
  Receipt Date: 20150717
  Transmission Date: 20151125
  Serious: No
  Sender: FDA-Public Use
  Company Number: None

PATIENT
  Age: 28 Year
  Sex: Female
  Weight: 62.6 kg

DRUGS (3)
  1. VITAMIN D [Concomitant]
     Active Substance: CHOLECALCIFEROL
  2. NORTRIPTYLENE 10 MG [Suspect]
     Active Substance: NORTRIPTYLINE
     Indication: FIBROMYALGIA
     Dosage: 2 TO 3 PILLS AT NIGHT
     Route: 048
     Dates: start: 20150412, end: 20150526
  3. WOMEN^S ONE A DAY [Concomitant]

REACTIONS (3)
  - Varicose vein [None]
  - Peripheral swelling [None]
  - Pain in extremity [None]

NARRATIVE: CASE EVENT DATE: 20150510
